FAERS Safety Report 5734823-3 (Version None)
Quarter: 2008Q2

REPORT INFORMATION
  Report Type: 
  Country: None (occurrence: None)
  Receive Date: 20080512
  Receipt Date: 20080430
  Transmission Date: 20081010
  Serious: Yes (Hospitalization)
  Sender: FDA-Public Use
  Company Number: DE-ROCHE-562293

PATIENT
  Age: 65 Year
  Sex: Female

DRUGS (2)
  1. BONIVA [Suspect]
     Dosage: STRENGTH REPORTED AS: 3MG/3ML.
     Route: 042
     Dates: start: 20070801, end: 20071201
  2. BONIVA [Suspect]
     Route: 042
     Dates: start: 20080301

REACTIONS (2)
  - ANAEMIA [None]
  - BONE MARROW FAILURE [None]
